FAERS Safety Report 13014677 (Version 1)
Quarter: 2016Q4

REPORT INFORMATION
  Report Type: Report from Study
  Country: None (occurrence: US)
  Receive Date: 20161209
  Receipt Date: 20161209
  Transmission Date: 20170207
  Serious: Yes (Other)
  Sender: FDA-Public Use
  Company Number: US-ABBVIE-16P-163-1806551-00

PATIENT
  Sex: Female

DRUGS (1)
  1. LUPRON DEPOT [Suspect]
     Active Substance: LEUPROLIDE ACETATE
     Indication: ENDOMETRIOSIS
     Route: 050
     Dates: start: 2014

REACTIONS (8)
  - Gastrooesophageal reflux disease [Recovering/Resolving]
  - Oesophageal dilatation [Unknown]
  - Endometriosis [Unknown]
  - Gastric ulcer [Recovered/Resolved]
  - Abdominal pain upper [Recovering/Resolving]
  - Oesophageal dilatation [Unknown]
  - Abdominal pain [Recovered/Resolved]
  - Abdominal pain [Not Recovered/Not Resolved]

NARRATIVE: CASE EVENT DATE: 2014
